FAERS Safety Report 5252034-5 (Version None)
Quarter: 2007Q1

REPORT INFORMATION
  Report Type: 
  Country: None (occurrence: None)
  Receive Date: 20070223
  Receipt Date: 20070214
  Transmission Date: 20070707
  Serious: Yes (Other)
  Sender: FDA-Public Use
  Company Number: 152931USA

PATIENT
  Age: 80 Year
  Sex: Female

DRUGS (1)
  1. DILTIAZEM HYDROCHLORIDE [Suspect]

REACTIONS (4)
  - DIVERTICULITIS OESOPHAGEAL [None]
  - HAEMATEMESIS [None]
  - MUCOSAL EROSION [None]
  - OESOPHAGITIS [None]
